FAERS Safety Report 7501283-1 (Version None)
Quarter: 2011Q2

REPORT INFORMATION
  Report Type: 
  Country: None (occurrence: None)
  Receive Date: 20110524
  Receipt Date: 20110513
  Transmission Date: 20111010
  Serious: Yes (Hospitalization)
  Sender: FDA-Public Use
  Company Number: US-BAXTER-2011BH013264

PATIENT
  Age: 50 Year
  Sex: Male

DRUGS (1)
  1. DIANEAL [Suspect]
     Indication: PERITONEAL DIALYSIS
     Route: 033

REACTIONS (6)
  - PANCREATITIS ACUTE [None]
  - VOMITING [None]
  - CONSTIPATION [None]
  - CELLULITIS [None]
  - CARDIAC DISORDER [None]
  - NAUSEA [None]
